FAERS Safety Report 25368166 (Version 1)
Quarter: 2025Q2

REPORT INFORMATION
  Report Type: Spontaneous
  Country: DE (occurrence: DE)
  Receive Date: 20250528
  Receipt Date: 20250528
  Transmission Date: 20250716
  Serious: Yes (Death, Other)
  Sender: ROCHE
  Company Number: DE-ROCHE-10000286964

PATIENT
  Age: 75 Year
  Sex: Male

DRUGS (7)
  1. GLOFITAMAB [Suspect]
     Active Substance: GLOFITAMAB
     Indication: Diffuse large B-cell lymphoma
     Route: 065
  2. METOPROLOL [Concomitant]
     Active Substance: METOPROLOL
  3. SPIRONOLACTONE [Concomitant]
     Active Substance: SPIRONOLACTONE
  4. TORSEMIDE [Concomitant]
     Active Substance: TORSEMIDE
  5. CANDESARTAN [Concomitant]
     Active Substance: CANDESARTAN
  6. ATORVASTATINB [Concomitant]
  7. SITAGLIPTIN [Concomitant]
     Active Substance: SITAGLIPTIN

REACTIONS (3)
  - Acute myocardial infarction [Fatal]
  - Pneumonia [Unknown]
  - Diarrhoea [Unknown]
